FAERS Safety Report 12232149 (Version 1)
Quarter: 2016Q2

REPORT INFORMATION
  Report Type: Spontaneous
  Country: US (occurrence: US)
  Receive Date: 20160401
  Receipt Date: 20160401
  Transmission Date: 20160815
  Serious: Yes (Hospitalization, Other)
  Sender: FDA-Public Use
  Company Number: US-EGALET US INC-US-2016EGA000153

PATIENT

DRUGS (1)
  1. OXYCODONE HYDROCHLORIDE. [Suspect]
     Active Substance: OXYCODONE HYDROCHLORIDE
     Indication: PAIN
     Dosage: UNK
     Route: 048

REACTIONS (10)
  - Neuropsychiatric syndrome [Unknown]
  - Memory impairment [Unknown]
  - Ill-defined disorder [Unknown]
  - Disturbance in attention [Unknown]
  - Suicide attempt [Unknown]
  - Apathy [Unknown]
  - Confusional state [Unknown]
  - Intentional overdose [Unknown]
  - Altered state of consciousness [Unknown]
  - Central nervous system lesion [Unknown]
